FAERS Safety Report 14327409 (Version 1)
Quarter: 2017Q4

REPORT INFORMATION
  Report Type: Spontaneous
  Country: GB (occurrence: GB)
  Receive Date: 20171227
  Receipt Date: 20171227
  Transmission Date: 20180321
  Serious: Yes (Congenital Anomaly)
  Sender: FDA-Public Use
  Company Number: GB-TEVA-2017-GB-830688

PATIENT
  Age: 34 Year
  Sex: Male
  Weight: 85 kg

DRUGS (4)
  1. RIBAVIRIN. [Suspect]
     Active Substance: RIBAVIRIN
     Indication: HEPATITIS C
     Dosage: 1200 MILLIGRAM DAILY; 600 MG, TWICE A DAY (BID)
     Route: 048
     Dates: start: 20170612, end: 20171001
  2. ZEPATIER [Suspect]
     Active Substance: ELBASVIR\GRAZOPREVIR
     Indication: HEPATITIS C
     Dosage: 1 DOSAGE FORMS DAILY; 50/100 (UNIT NOT PROVIDED), 1 TABLET
     Route: 048
     Dates: start: 20170612, end: 20171001
  3. SUBOXONE [Concomitant]
     Active Substance: BUPRENORPHINE HYDROCHLORIDE\NALOXONE HYDROCHLORIDE
     Indication: PRODUCT SUBSTITUTION
     Dosage: 10 MILLIGRAM DAILY;
     Route: 060
     Dates: start: 20170612
  4. BACLOFEN. [Concomitant]
     Active Substance: BACLOFEN
     Indication: ALCOHOLISM
     Dosage: 20 MILLIGRAM DAILY;
     Route: 048
     Dates: start: 20170612

REACTIONS (1)
  - Huntington^s disease [Recovering/Resolving]

NARRATIVE: CASE EVENT DATE: 20170628
